FAERS Safety Report 7007295-9 (Version None)
Quarter: 2010Q3

REPORT INFORMATION
  Report Type: 
  Country: None (occurrence: None)
  Receive Date: 20100922
  Receipt Date: 20100913
  Transmission Date: 20110219
  Serious: Yes (Hospitalization, Other)
  Sender: FDA-Public Use
  Company Number: PHHY2009DE45892

PATIENT
  Sex: Female
  Weight: 85 kg

DRUGS (4)
  1. CGS 20267 T30748+ [Suspect]
     Indication: BREAST CANCER
     Dosage: 2.5 MG DAILY
     Route: 048
     Dates: start: 20081220
  2. BLOPRESS [Concomitant]
     Indication: HYPERTENSION
     Route: 048
  3. FUROSEMIDE [Concomitant]
     Indication: HYPERTENSION
  4. RADIOTHERAPY [Concomitant]
     Dosage: UNK
     Dates: start: 20081119, end: 20081224

REACTIONS (7)
  - ARTHRALGIA [None]
  - DYSPNOEA EXERTIONAL [None]
  - HERPES ZOSTER [None]
  - INCISION SITE BLISTER [None]
  - SCAR PAIN [None]
  - SEROMA [None]
  - UTERINE DILATION AND CURETTAGE [None]
